FAERS Safety Report 19037851 (Version 1)
Quarter: 2021Q1

REPORT INFORMATION
  Report Type: Spontaneous
  Country: US (occurrence: US)
  Receive Date: 20210322
  Receipt Date: 20210322
  Transmission Date: 20210420
  Serious: Yes (Death)
  Sender: FDA-Public Use
  Company Number: US-TILLOMEDPR-2021-EPL-000882

PATIENT
  Age: 76 Year
  Sex: Male

DRUGS (1)
  1. TRANEXAMIC ACID. [Suspect]
     Active Substance: TRANEXAMIC ACID
     Indication: KNEE ARTHROPLASTY

REACTIONS (7)
  - Hypertension [Fatal]
  - Respiratory rate increased [Fatal]
  - Incorrect route of product administration [Fatal]
  - Pneumonia aspiration [Fatal]
  - Respiratory failure [Fatal]
  - Dependence on respirator [Fatal]
  - Myoclonic epilepsy [Fatal]
